FAERS Safety Report 7572992-3 (Version None)
Quarter: 2011Q2

REPORT INFORMATION
  Report Type: 
  Country: None (occurrence: None)
  Receive Date: 20110627
  Receipt Date: 20110620
  Transmission Date: 20111010
  Serious: Yes (Other)
  Sender: FDA-Public Use
  Company Number: US-JNJFOC-20110609433

PATIENT
  Sex: Female
  Weight: 72.58 kg

DRUGS (4)
  1. DURAGESIC-100 [Suspect]
     Indication: BACK PAIN
     Route: 062
     Dates: start: 19970101
  2. FENTANYL-100 [Suspect]
     Indication: BACK PAIN
     Route: 062
     Dates: end: 20110601
  3. DURAGESIC-100 [Suspect]
     Route: 062
     Dates: start: 20110601
  4. FENTANYL-100 [Suspect]
     Indication: BACK PAIN
     Route: 062
     Dates: end: 20110601

REACTIONS (7)
  - OEDEMA PERIPHERAL [None]
  - PRODUCT ADHESION ISSUE [None]
  - MUSCULOSKELETAL STIFFNESS [None]
  - UPPER LIMB FRACTURE [None]
  - CEREBROVASCULAR ACCIDENT [None]
  - LIMB DISCOMFORT [None]
  - FALL [None]
